FAERS Safety Report 5828484-2 (Version None)
Quarter: 2008Q3

REPORT INFORMATION
  Report Type: 
  Country: None (occurrence: None)
  Receive Date: 20080729
  Receipt Date: 20080714
  Transmission Date: 20090109
  Serious: Yes (Hospitalization)
  Sender: FDA-Public Use
  Company Number: 2008001668

PATIENT
  Age: 67 Year
  Sex: Female

DRUGS (2)
  1. ERLOTINIB (ERLOTINIB) (TABLET) (ERLOTINIB) [Suspect]
     Indication: LUNG ADENOCARCINOMA
     Dosage: 150 MG QD ORAL
     Route: 048
     Dates: start: 20080124
  2. FENTANYL TRANSDERMAL SYSTEM [Concomitant]

REACTIONS (3)
  - CHEILITIS [None]
  - DISEASE PROGRESSION [None]
  - SKIN ULCER [None]
